FAERS Safety Report 17330162 (Version 1)
Quarter: 2020Q1

REPORT INFORMATION
  Report Type: Spontaneous
  Country: US (occurrence: US)
  Receive Date: 20200127
  Receipt Date: 20200127
  Transmission Date: 20200409
  Serious: Yes (Hospitalization, Disabling)
  Sender: FDA-Public Use
  Company Number: None

PATIENT
  Age: 71 Year
  Sex: Female
  Weight: 81 kg

DRUGS (2)
  1. WP THYROID [Suspect]
     Active Substance: THYROID, PORCINE
     Indication: HYPOTHYROIDISM
     Dosage: ?          QUANTITY:48 TABLET(S);OTHER FREQUENCY:2-5DAYS 1-2DAYS/WK;?
     Route: 048
     Dates: start: 20170101, end: 20200121
  2. WP THYROID [Suspect]
     Active Substance: THYROID, PORCINE
     Indication: THYROID FUNCTION TEST ABNORMAL
     Dosage: ?          QUANTITY:48 TABLET(S);OTHER FREQUENCY:2-5DAYS 1-2DAYS/WK;?
     Route: 048
     Dates: start: 20170101, end: 20200121

REACTIONS (1)
  - Atrial fibrillation [None]

NARRATIVE: CASE EVENT DATE: 20190709
